FAERS Safety Report 4965072-4 (Version None)
Quarter: 2006Q1

REPORT INFORMATION
  Report Type: 
  Country: None (occurrence: None)
  Receive Date: 20060207
  Receipt Date: 20050722
  Transmission Date: 20060701
  Serious: Yes (Hospitalization)
  Sender: FDA-Public Use
  Company Number: 239924

PATIENT
  Age: 76 Year
  Sex: Male
  Weight: 63.5 kg

DRUGS (13)
  1. NOVOLOG [Suspect]
     Indication: INSULIN-REQUIRING TYPE II DIABETES MELLITUS
     Dosage: SEE IMAGE
     Route: 058
     Dates: start: 20041014, end: 20041014
  2. NOVOLOG [Suspect]
     Indication: INSULIN-REQUIRING TYPE II DIABETES MELLITUS
     Dosage: SEE IMAGE
     Route: 058
     Dates: start: 20041015, end: 20041015
  3. ALLEGRA [Concomitant]
  4. LIPITOR [Concomitant]
  5. FLUOXETINE [Concomitant]
  6. WARFARIN SODIUM [Concomitant]
  7. NEURONTIN [Concomitant]
  8. DARVOCET-N (PARACETAMOL DEXTROPROPOXYPHENE NAPSILATE) [Concomitant]
  9. NORVASC [Concomitant]
  10. FLUVACCIN (INFLUENZA VIRUS VACCINE POLYVALENT) [Concomitant]
  11. AMBIEN [Concomitant]
  12. VALIUM [Concomitant]
  13. CORTROSYN (TETRACOSACTIDE) [Concomitant]

REACTIONS (1)
  - HYPOGLYCAEMIA [None]
